FAERS Safety Report 20198049 (Version 1)
Quarter: 2021Q4

REPORT INFORMATION
  Report Type: Spontaneous
  Country: GB (occurrence: GB)
  Receive Date: 20211217
  Receipt Date: 20211217
  Transmission Date: 20220303
  Serious: Yes (Disabling, Other)
  Sender: FDA-Public Use
  Company Number: None

PATIENT
  Age: 84 Year
  Sex: Female
  Weight: 69.85 kg

DRUGS (7)
  1. PROLIA [Suspect]
     Active Substance: DENOSUMAB
     Indication: Osteoporosis
     Dosage: 60 MILLIGRAM
     Route: 051
     Dates: start: 2014
  2. ATORVASTATIN [Concomitant]
     Active Substance: ATORVASTATIN
     Dosage: UNK
  3. ETANERCEPT [Concomitant]
     Active Substance: ETANERCEPT
     Dosage: UNK
  4. CLOPIDOGREL [Concomitant]
     Active Substance: CLOPIDOGREL BISULFATE
     Dosage: UNK
  5. LEVOTHYROXINE [Concomitant]
     Active Substance: LEVOTHYROXINE
     Dosage: UNK
  6. PREDNISOL [PREDNISOLONE SODIUM PHOSPHATE] [Concomitant]
     Dosage: UNK
  7. PERINDOPRIL [Concomitant]
     Active Substance: PERINDOPRIL
     Dosage: UNK

REACTIONS (3)
  - Oedema [Not Recovered/Not Resolved]
  - Product communication issue [Unknown]
  - Urinary tract infection [Recovered/Resolved]

NARRATIVE: CASE EVENT DATE: 20180101
